FAERS Safety Report 5908578-3 (Version None)
Quarter: 2008Q3

REPORT INFORMATION
  Report Type: 
  Country: None (occurrence: None)
  Receive Date: 20080930
  Receipt Date: 20080922
  Transmission Date: 20090109
  Serious: Yes (Hospitalization)
  Sender: FDA-Public Use
  Company Number: 2007BI007964

PATIENT
  Age: 61 Year
  Sex: Female
  Weight: 85.7298 kg

DRUGS (2)
  1. AVONEX [Suspect]
     Indication: MULTIPLE SCLEROSIS
     Dosage: 30 UG QW IM
     Route: 030
     Dates: start: 19971018, end: 20030101
  2. AVONEX [Suspect]
     Indication: MULTIPLE SCLEROSIS
     Dosage: 30 UG QW IM
     Route: 030
     Dates: start: 20030101

REACTIONS (8)
  - ASTHMA [None]
  - CHOLELITHIASIS [None]
  - CHRONIC OBSTRUCTIVE PULMONARY DISEASE [None]
  - CYSTITIS [None]
  - DRUG HYPERSENSITIVITY [None]
  - KIDNEY INFECTION [None]
  - MYOCARDIAL INFARCTION [None]
  - RESPIRATORY ARREST [None]
